FAERS Safety Report 5538249-7 (Version None)
Quarter: 2007Q4

REPORT INFORMATION
  Report Type: 
  Country: None (occurrence: None)
  Receive Date: 20071204
  Receipt Date: 20071119
  Transmission Date: 20080405
  Serious: Yes (Other)
  Sender: FDA-Public Use
  Company Number: 164274ISR

PATIENT
  Sex: Female

DRUGS (2)
  1. CARBOPLATIN [Suspect]
     Dates: start: 20071019, end: 20071019
  2. GLUCOSE [Suspect]
     Dosage: 595 MG IN 58.5 MLL
     Dates: start: 20071019, end: 20071019

REACTIONS (3)
  - ACCIDENTAL EXPOSURE [None]
  - PHARMACEUTICAL PRODUCT COMPLAINT [None]
  - SCAR [None]
